FAERS Safety Report 5344868-3 (Version None)
Quarter: 2007Q2

REPORT INFORMATION
  Report Type: 
  Country: None (occurrence: None)
  Receive Date: 20070416
  Receipt Date: 20070117
  Transmission Date: 20071010
  Serious: No
  Sender: FDA-Public Use
  Company Number: 2007SP000196

PATIENT
  Age: 82 Year
  Sex: Male
  Weight: 72.5755 kg

DRUGS (8)
  1. LUNESTA [Suspect]
     Indication: INSOMNIA
     Dosage: 3 MG;ORAL
     Route: 048
     Dates: start: 20070101
  2. METOPROLOL SUCCINATE [Concomitant]
  3. PANTOPRAZOLE SODIUM [Concomitant]
  4. ISOSORBIDE DINITRATE [Concomitant]
  5. RANEXA [Concomitant]
  6. ALLOPURINOL [Concomitant]
  7. ATORVASTATIN CALCIUM [Concomitant]
  8. SODIUM BICARBONATE [Concomitant]

REACTIONS (1)
  - SOMNOLENCE [None]
